FAERS Safety Report 6987629-1 (Version None)
Quarter: 2010Q3

REPORT INFORMATION
  Report Type: 
  Country: None (occurrence: None)
  Receive Date: 20100916
  Receipt Date: 20100907
  Transmission Date: 20110219
  Serious: Yes (Other)
  Sender: FDA-Public Use
  Company Number: US-SANOFI-AVENTIS-2010SA054147

PATIENT
  Age: 67 Year
  Sex: Male

DRUGS (14)
  1. MULTAQ [Suspect]
     Indication: ATRIAL FIBRILLATION
     Route: 048
     Dates: start: 20090901
  2. OMEPRAZOLE [Interacting]
     Route: 065
     Dates: start: 20100801, end: 20100906
  3. DIOVANE [Concomitant]
  4. TRICOR [Concomitant]
  5. NORVASC [Concomitant]
  6. COUMADIN [Concomitant]
  7. ISOPTIN [Concomitant]
  8. GLIPIZIDE [Concomitant]
  9. OMEPRAZOLE [Concomitant]
     Dates: end: 20100801
  10. LIPITOR [Concomitant]
  11. LEVOXYL [Concomitant]
     Indication: HYPOTHYROIDISM
  12. ASPIRIN [Concomitant]
  13. LORAZEPAM [Concomitant]
  14. VITAMIN D [Concomitant]

REACTIONS (2)
  - ATRIAL FIBRILLATION [None]
  - DRUG INTERACTION [None]
